FAERS Safety Report 8571292-2 (Version None)
Quarter: 2012Q3

REPORT INFORMATION
  Report Type: 
  Country: None (occurrence: None)
  Receive Date: 20120806
  Receipt Date: 20120725
  Transmission Date: 20120928
  Serious: No
  Sender: FDA-Public Use
  Company Number: US-009507513-1207USA011622

PATIENT

DRUGS (2)
  1. DULERA [Suspect]
     Indication: ASTHMA
     Dosage: UNK, BID
     Dates: start: 20120715, end: 20120722
  2. PROAIR (ALBUTEROL SULFATE) [Concomitant]

REACTIONS (4)
  - ORAL PAIN [None]
  - GLOSSODYNIA [None]
  - CANDIDIASIS [None]
  - SWOLLEN TONGUE [None]
